FAERS Safety Report 6373567-4 (Version None)
Quarter: 2009Q3

REPORT INFORMATION
  Report Type: 
  Country: None (occurrence: None)
  Receive Date: 20090924
  Receipt Date: 20090302
  Transmission Date: 20100115
  Serious: Yes (Other)
  Sender: FDA-Public Use
  Company Number: US-ASTRAZENECA-2009UW04259

PATIENT
  Age: 447 Month
  Sex: Male

DRUGS (2)
  1. SEROQUEL [Suspect]
     Indication: DEPRESSION
     Dosage: 75 MG TO 175 MG
     Route: 048
     Dates: start: 20020730, end: 20031001
  2. SEROQUEL [Suspect]
     Indication: INSOMNIA
     Dosage: 75 MG TO 175 MG
     Route: 048
     Dates: start: 20020730, end: 20031001

REACTIONS (1)
  - PANCREATITIS ACUTE [None]
